FAERS Safety Report 11586098 (Version 1)
Quarter: 2015Q3

REPORT INFORMATION
  Report Type: Spontaneous
  Country: US (occurrence: US)
  Receive Date: 20150916
  Receipt Date: 20150916
  Transmission Date: 20151125
  Serious: No
  Sender: FDA-Public Use
  Company Number: US-ELI_LILLY_AND_COMPANY-US200803004235

PATIENT
  Sex: Female

DRUGS (9)
  1. VITAMINS [Concomitant]
     Active Substance: VITAMINS
  2. GABAPENTIN. [Concomitant]
     Active Substance: GABAPENTIN
     Indication: SPINAL COLUMN STENOSIS
  3. BACLOFEN. [Concomitant]
     Active Substance: BACLOFEN
  4. CALCIUM [Concomitant]
     Active Substance: CALCIUM
  5. HYDROCHLOROTHIAZIDE. [Concomitant]
     Active Substance: HYDROCHLOROTHIAZIDE
     Indication: BLOOD PRESSURE MEASUREMENT
  6. LEVOTHYROXINE. [Concomitant]
     Active Substance: LEVOTHYROXINE
  7. FORTEO [Suspect]
     Active Substance: TERIPARATIDE
     Indication: OSTEOPOROSIS
     Dates: start: 20070412
  8. VITAMIN D [Concomitant]
     Active Substance: CHOLECALCIFEROL
  9. HYDROCODONE [Concomitant]
     Active Substance: HYDROCODONE

REACTIONS (3)
  - Spinal fracture [Recovering/Resolving]
  - Abdominal pain upper [Recovered/Resolved]
  - Diarrhoea [Recovered/Resolved]

NARRATIVE: CASE EVENT DATE: 200801
